FAERS Safety Report 6667518-2 (Version None)
Quarter: 2010Q2

REPORT INFORMATION
  Report Type: 
  Country: None (occurrence: None)
  Receive Date: 20100405
  Receipt Date: 20100331
  Transmission Date: 20101027
  Serious: Yes (Hospitalization)
  Sender: FDA-Public Use
  Company Number: FR-ROCHE-694645

PATIENT
  Sex: Female

DRUGS (16)
  1. ROCEPHIN [Suspect]
     Route: 042
     Dates: start: 20100203, end: 20100208
  2. ROVAMYCINE [Suspect]
     Route: 048
     Dates: start: 20100203, end: 20100208
  3. FORLAX [Concomitant]
  4. LASIX [Concomitant]
  5. VITAMIN C [Concomitant]
  6. CITALOPRAM HYDROBROMIDE [Concomitant]
     Indication: BIPOLAR DISORDER
  7. IMOVANE [Concomitant]
     Indication: BIPOLAR DISORDER
  8. COVERSYL [Concomitant]
  9. XANAX [Concomitant]
  10. AMITRIPTYLINE HCL [Concomitant]
  11. NEXIUM [Concomitant]
  12. CALCIPARINE [Concomitant]
  13. AUGMENTIN '125' [Concomitant]
     Dates: start: 20100130, end: 20100203
  14. BRICANYL [Concomitant]
  15. ATROVENT [Concomitant]
  16. FLAGYL [Concomitant]
     Dates: end: 20100211

REACTIONS (1)
  - ACUTE GENERALISED EXANTHEMATOUS PUSTULOSIS [None]
